FAERS Safety Report 6300596-9 (Version None)
Quarter: 2009Q3

REPORT INFORMATION
  Report Type: 
  Country: None (occurrence: None)
  Receive Date: 20090806
  Receipt Date: 20090706
  Transmission Date: 20100115
  Serious: No
  Sender: FDA-Public Use
  Company Number: US-ABBOTT-09P-163-0583059-00

PATIENT
  Sex: Male
  Weight: 98.518 kg

DRUGS (10)
  1. DEPAKOTE ER [Suspect]
     Indication: BIPOLAR DISORDER
     Dosage: 1500MG DAILY
     Route: 048
     Dates: start: 20090501
  2. DEPAKOTE ER [Suspect]
     Indication: SCHIZOAFFECTIVE DISORDER
     Dates: start: 20090625
  3. ABILIFY [Suspect]
     Indication: SCHIZOAFFECTIVE DISORDER
  4. ABILIFY [Suspect]
     Indication: BIPOLAR DISORDER
  5. BUSPAR [Concomitant]
     Indication: SCHIZOAFFECTIVE DISORDER
  6. BUSPAR [Concomitant]
     Indication: BIPOLAR DISORDER
  7. PEPCID [Concomitant]
     Indication: PROPHYLAXIS AGAINST GASTROINTESTINAL ULCER
  8. MULTIPLE VITAMINS [Concomitant]
     Indication: ROUTINE HEALTH MAINTENANCE
  9. SEROQUEL [Concomitant]
     Indication: BIPOLAR DISORDER
     Dates: start: 20090701
  10. SEROQUEL [Concomitant]
     Indication: SCHIZOAFFECTIVE DISORDER

REACTIONS (2)
  - ANXIETY [None]
  - WEIGHT INCREASED [None]
